FAERS Safety Report 18260260 (Version 3)
Quarter: 2020Q4

REPORT INFORMATION
  Report Type: Spontaneous
  Country: CN (occurrence: CN)
  Receive Date: 20200914
  Receipt Date: 20201020
  Transmission Date: 20210113
  Serious: Yes (Hospitalization, Other)
  Sender: FDA-Public Use
  Company Number: CN-GILEAD-2020-0491178

PATIENT
  Age: 34 Year
  Sex: Male

DRUGS (1)
  1. VEMLIDY [Suspect]
     Active Substance: TENOFOVIR ALAFENAMIDE FUMARATE
     Indication: HEPATITIS B
     Dosage: 1 DOSAGE FORM, QD
     Route: 048
     Dates: start: 202003

REACTIONS (3)
  - Spinal compression fracture [Unknown]
  - Alanine aminotransferase increased [Not Recovered/Not Resolved]
  - Prescription drug used without a prescription [Not Recovered/Not Resolved]

NARRATIVE: CASE EVENT DATE: 202003
